FAERS Safety Report 9699492 (Version 1)
Quarter: 2013Q4

REPORT INFORMATION
  Report Type: Spontaneous
  Country: US (occurrence: US)
  Receive Date: 20131120
  Receipt Date: 20131120
  Transmission Date: 20140711
  Serious: No
  Sender: FDA-Public Use
  Company Number: US-TEVA-370529USA

PATIENT
  Age: 17 Year
  Sex: Female
  Weight: 74.91 kg

DRUGS (2)
  1. PARAGARD 380A [Suspect]
     Indication: CONTRACEPTION
     Route: 015
     Dates: start: 20120419, end: 20121113
  2. ALLEGRA [Concomitant]
     Indication: SEASONAL ALLERGY

REACTIONS (3)
  - Uterine spasm [Unknown]
  - Dyspareunia [Unknown]
  - Device expulsion [Recovered/Resolved]
